FAERS Safety Report 8895719 (Version 1)
Quarter: 2012Q4

REPORT INFORMATION
  Report Type: 
  Country: US (occurrence: US)
  Receive Date: 20121108
  Receipt Date: 20121108
  Transmission Date: 20130627
  Serious: Yes (Hospitalization)
  Sender: FDA-Public Use
  Company Number: US-ROXANE LABORATORIES, INC.-2012-RO-02340RO

PATIENT
  Age: 61 Year
  Sex: Female

DRUGS (6)
  1. CYCLOPHOSPHAMIDE TABLETS USP [Suspect]
     Indication: GLOMERULONEPHRITIS RAPIDLY PROGRESSIVE
     Dosage: 870 mg
  2. PREDNISONE [Suspect]
  3. SILDENAFIL [Suspect]
     Indication: PULMONARY HYPERTENSION
  4. AMBRISENTAN [Suspect]
     Indication: PULMONARY HYPERTENSION
  5. METHYLPREDNISOLONE [Suspect]
     Indication: GLOMERULONEPHRITIS RAPIDLY PROGRESSIVE
     Route: 042
  6. PHENYTOIN [Suspect]
     Indication: PULMONARY HYPERTENSION

REACTIONS (5)
  - Cytotoxic cardiomyopathy [Not Recovered/Not Resolved]
  - Convulsion [Unknown]
  - Mental status changes [Unknown]
  - Substance-induced psychotic disorder [Unknown]
  - Cardiogenic shock [Recovered/Resolved]
